FAERS Safety Report 6040371-6 (Version None)
Quarter: 2009Q1

REPORT INFORMATION
  Report Type: 
  Country: None (occurrence: None)
  Receive Date: 20090116
  Receipt Date: 20080229
  Transmission Date: 20090719
  Serious: No
  Sender: FDA-Public Use
  Company Number: US-BRISTOL-MYERS SQUIBB COMPANY-14097109

PATIENT
  Age: 41 Year
  Sex: Female

DRUGS (2)
  1. ABILIFY [Suspect]
     Dates: end: 20080222
  2. AMBIEN [Concomitant]

REACTIONS (1)
  - HEPATIC ENZYME INCREASED [None]
